FAERS Safety Report 14024123 (Version 1)
Quarter: 2017Q3

REPORT INFORMATION
  Report Type: Spontaneous
  Country: US (occurrence: US)
  Receive Date: 20170928
  Receipt Date: 20170928
  Transmission Date: 20171128
  Serious: No
  Sender: FDA-Public Use
  Company Number: US-SA-2017SA037522

PATIENT
  Sex: Female

DRUGS (1)
  1. AUBAGIO [Suspect]
     Active Substance: TERIFLUNOMIDE
     Indication: MULTIPLE SCLEROSIS
     Route: 065

REACTIONS (8)
  - Tinnitus [Unknown]
  - Rash [Unknown]
  - Hypoaesthesia [Unknown]
  - Fatigue [Unknown]
  - Dizziness [Unknown]
  - Hypoaesthesia oral [Unknown]
  - Balance disorder [Unknown]
  - Vision blurred [Unknown]
